APPROVED DRUG PRODUCT: DESVENLAFAXINE SUCCINATE
Active Ingredient: DESVENLAFAXINE SUCCINATE
Strength: EQ 25MG BASE
Dosage Form/Route: TABLET, EXTENDED RELEASE;ORAL
Application: A204065 | Product #001 | TE Code: AB
Applicant: ACTAVIS LABORATORIES FL INC AN INDIRECT WHOLLY OWNED SUB OF TEVA PHARMACEUTICALS USA INC
Approved: Jul 29, 2016 | RLD: No | RS: No | Type: RX